FAERS Safety Report 14694208 (Version 1)
Quarter: 2018Q1

REPORT INFORMATION
  Report Type: Spontaneous
  Country: US (occurrence: US)
  Receive Date: 20180329
  Receipt Date: 20180329
  Transmission Date: 20180509
  Serious: Yes (Other)
  Sender: FDA-Public Use
  Company Number: US-SUPERNUS PHARMACEUTICALS, INC.-2018SUP00088

PATIENT
  Sex: Female

DRUGS (5)
  1. TROKENDI XR [Suspect]
     Active Substance: TOPIRAMATE
     Indication: SEIZURE
     Dosage: UNK, 1X/DAY
     Dates: start: 2018, end: 2018
  2. TROKENDI XR [Suspect]
     Active Substance: TOPIRAMATE
     Dosage: 250 TO 300 MG, 1X/DAY
     Dates: start: 2018
  3. ZOLOFT [Suspect]
     Active Substance: SERTRALINE HYDROCHLORIDE
     Indication: VESTIBULAR DISORDER
     Dosage: UNK
     Dates: end: 2018
  4. TROKENDI XR [Suspect]
     Active Substance: TOPIRAMATE
     Dosage: 200 MG, 1X/DAY
     Dates: start: 2018, end: 2018
  5. KLONOPIN [Concomitant]
     Active Substance: CLONAZEPAM

REACTIONS (16)
  - Visual impairment [Not Recovered/Not Resolved]
  - Depressed mood [Not Recovered/Not Resolved]
  - Agitation [Not Recovered/Not Resolved]
  - Muscle spasms [Not Recovered/Not Resolved]
  - Seizure [Unknown]
  - Fall [Not Recovered/Not Resolved]
  - Thinking abnormal [Not Recovered/Not Resolved]
  - Screaming [Not Recovered/Not Resolved]
  - Gait inability [Not Recovered/Not Resolved]
  - Aggression [Not Recovered/Not Resolved]
  - Cystitis [Unknown]
  - Pain [Not Recovered/Not Resolved]
  - Psychotic disorder [Not Recovered/Not Resolved]
  - Anger [Not Recovered/Not Resolved]
  - Insomnia [Not Recovered/Not Resolved]
  - Irritability [Not Recovered/Not Resolved]
